FAERS Safety Report 9120802 (Version 3)
Quarter: 2013Q2

REPORT INFORMATION
  Report Type: Spontaneous
  Country: DK (occurrence: IT)
  Receive Date: 20130226
  Receipt Date: 20130411
  Transmission Date: 20140414
  Serious: Yes (Hospitalization)
  Sender: FDA-Public Use
  Company Number: IT-FRI-1000042946

PATIENT
  Age: 23 Year
  Sex: Male

DRUGS (3)
  1. ESCITALOPRAM ORAL SOLUTION [Suspect]
     Indication: PRADER-WILLI SYNDROME
     Dosage: 15 DROPS
     Route: 048
     Dates: start: 20120809, end: 20120816
  2. VALIUM [Concomitant]
     Dosage: 30 DROPS
     Route: 048
     Dates: start: 20120101, end: 20120816
  3. GROWTH HORMONE [Concomitant]
     Indication: PRADER-WILLI SYNDROME

REACTIONS (2)
  - Serotonin syndrome [Recovering/Resolving]
  - Off label use [Recovered/Resolved]
